FAERS Safety Report 15920544 (Version 4)
Quarter: 2020Q4

REPORT INFORMATION
  Report Type: Report from Study
  Country: JP (occurrence: JP)
  Receive Date: 20190205
  Receipt Date: 20201007
  Transmission Date: 20210113
  Serious: Yes (Other)
  Sender: FDA-Public Use
  Company Number: JP-OTSUKA-2019_003167AA

PATIENT
  Age: 43 Year
  Sex: Male
  Weight: 72.9 kg

DRUGS (6)
  1. TOLVAPTAN [Suspect]
     Active Substance: TOLVAPTAN
     Dosage: 30 MG/DAY, DIVIDED 2 DOSES (EACH DOSE UNKNOWN)
     Route: 048
     Dates: start: 20180417, end: 20180515
  2. TOLVAPTAN [Suspect]
     Active Substance: TOLVAPTAN
     Indication: CONGENITAL CYSTIC KIDNEY DISEASE
     Dosage: 90 MG/DAY, DIVIDED 2 DOSES (EACH DOSE UNKNOWN)
     Route: 048
     Dates: start: 20160308, end: 20180416
  3. FEBURIC [Concomitant]
     Active Substance: FEBUXOSTAT
     Indication: PRODUCT USED FOR UNKNOWN INDICATION
     Dosage: 20 MG, QD
     Route: 048
     Dates: start: 20130527
  4. TOLVAPTAN [Suspect]
     Active Substance: TOLVAPTAN
     Dosage: 60 MG/DAY, DIVIDED 2 DOSES (EACH DOSE UNKNOWN)
     Route: 048
     Dates: start: 20160115, end: 20160307
  5. MEVALOTIN [Concomitant]
     Active Substance: PRAVASTATIN SODIUM
     Indication: PRODUCT USED FOR UNKNOWN INDICATION
     Dosage: 10 MG, QD
     Route: 048
     Dates: start: 20150914
  6. AMLODIPINE [Concomitant]
     Active Substance: AMLODIPINE BESYLATE
     Indication: PRODUCT USED FOR UNKNOWN INDICATION
     Dosage: 1 DF, QD
     Route: 048
     Dates: start: 20170503

REACTIONS (4)
  - Renal failure [Not Recovered/Not Resolved]
  - Renal cyst haemorrhage [Recovered/Resolved]
  - Blood osmolarity increased [Not Recovered/Not Resolved]
  - Renal failure [Not Recovered/Not Resolved]

NARRATIVE: CASE EVENT DATE: 20180306
